FAERS Safety Report 8116503-2 (Version None)
Quarter: 2012Q1

REPORT INFORMATION
  Report Type: 
  Country: None (occurrence: None)
  Receive Date: 20120206
  Receipt Date: 20120127
  Transmission Date: 20120608
  Serious: Yes (Hospitalization)
  Sender: FDA-Public Use
  Company Number: US-BAYER-201033461NA

PATIENT
  Age: 46 Year
  Sex: Female
  Weight: 76.644 kg

DRUGS (2)
  1. SYNTHROID [Concomitant]
  2. YAZ [Suspect]
     Dosage: UNK
     Dates: start: 20090301, end: 20090601

REACTIONS (6)
  - PULMONARY EMBOLISM [None]
  - DYSPNOEA [None]
  - ANXIETY [None]
  - DEPRESSION [None]
  - FEAR [None]
  - PAIN [None]
